FAERS Safety Report 15005560 (Version 1)
Quarter: 2018Q2

REPORT INFORMATION
  Report Type: Spontaneous
  Country: GB (occurrence: GB)
  Receive Date: 20180613
  Receipt Date: 20180613
  Transmission Date: 20180711
  Serious: Yes (Hospitalization, Other)
  Sender: FDA-Public Use
  Company Number: GB-ELI_LILLY_AND_COMPANY-GB201806000201

PATIENT
  Sex: Male

DRUGS (1)
  1. INSULIN GLARGINE [Suspect]
     Active Substance: INSULIN GLARGINE
     Indication: PRODUCT USED FOR UNKNOWN INDICATION
     Dosage: UNK, UNKNOWN
     Route: 065

REACTIONS (9)
  - Suicidal behaviour [Unknown]
  - Insomnia [Unknown]
  - Weight decreased [Unknown]
  - Formication [Unknown]
  - Skin burning sensation [Unknown]
  - Paraesthesia [Unknown]
  - Pruritus [Unknown]
  - Fatigue [Unknown]
  - Pain [Unknown]
